FAERS Safety Report 8241640-1 (Version None)
Quarter: 2012Q1

REPORT INFORMATION
  Report Type: 
  Country: None (occurrence: None)
  Receive Date: 20120328
  Receipt Date: 20120322
  Transmission Date: 20120608
  Serious: Yes (Hospitalization)
  Sender: FDA-Public Use
  Company Number: SE-AMGEN-SWESP2012018591

PATIENT
  Age: 92 Year
  Sex: Male

DRUGS (3)
  1. FUROSEMIDE [Concomitant]
     Indication: CARDIAC FAILURE CONGESTIVE
     Dosage: UNK
  2. CINACALCET HYDROCHLORIDE [Suspect]
     Dosage: 30 MG, UNK
     Dates: start: 20100917, end: 20110405
  3. CINACALCET HYDROCHLORIDE [Suspect]
     Indication: HYPERPARATHYROIDISM PRIMARY
     Dosage: 30 MG, BID
     Dates: start: 20100405

REACTIONS (1)
  - CARDIAC FAILURE CONGESTIVE [None]
